FAERS Safety Report 11933168 (Version 1)
Quarter: 2016Q1

REPORT INFORMATION
  Report Type: Spontaneous
  Country: GB (occurrence: GB)
  Receive Date: 20160121
  Receipt Date: 20160121
  Transmission Date: 20160526
  Serious: Yes (Death, Other)
  Sender: FDA-Public Use
  Company Number: GB-ROCHE-1696423

PATIENT
  Sex: Male

DRUGS (1)
  1. PIRFENIDONE [Suspect]
     Active Substance: PIRFENIDONE
     Indication: PRODUCT USED FOR UNKNOWN INDICATION
     Route: 065

REACTIONS (8)
  - Lower respiratory tract infection [Unknown]
  - Constipation [Unknown]
  - Death [Fatal]
  - Lung neoplasm malignant [Unknown]
  - Dyspnoea [Unknown]
  - Palpitations [Unknown]
  - Decreased appetite [Unknown]
  - Pneumonitis [Unknown]

NARRATIVE: CASE EVENT DATE: 20141017
